FAERS Safety Report 19380996 (Version 1)
Quarter: 2021Q2

REPORT INFORMATION
  Report Type: Spontaneous
  Country: US (occurrence: US)
  Receive Date: 20210607
  Receipt Date: 20210607
  Transmission Date: 20210717
  Serious: Yes (Other)
  Sender: FDA-Public Use
  Company Number: US-GLAXOSMITHKLINE-US2021GSK120342

PATIENT
  Sex: Female

DRUGS (16)
  1. RANITIDINE. [Suspect]
     Active Substance: RANITIDINE
     Indication: GASTRIC ULCER
     Dosage: 75 MG, QD
     Route: 065
     Dates: start: 201801, end: 201804
  2. ZANTAC [Suspect]
     Active Substance: RANITIDINE HYDROCHLORIDE
     Indication: DIARRHOEA
  3. RANITIDINE. [Suspect]
     Active Substance: RANITIDINE
     Dosage: 300 MG, QD
     Route: 065
     Dates: start: 201801, end: 201804
  4. RANITIDINE. [Suspect]
     Active Substance: RANITIDINE
     Dosage: 300 MG, QD
     Route: 065
     Dates: start: 201801, end: 201804
  5. ZANTAC [Suspect]
     Active Substance: RANITIDINE HYDROCHLORIDE
     Indication: GASTRIC ULCER
     Dosage: UNK
     Route: 065
  6. ZANTAC [Suspect]
     Active Substance: RANITIDINE HYDROCHLORIDE
     Indication: GASTRIC ULCER
     Dosage: UNK
     Route: 065
  7. RANITIDINE. [Suspect]
     Active Substance: RANITIDINE
     Indication: GASTRIC ULCER
     Dosage: 75 MG, QD
     Route: 065
     Dates: start: 201801, end: 201804
  8. RANITIDINE. [Suspect]
     Active Substance: RANITIDINE
     Indication: DIARRHOEA
     Dosage: 150 MG, QD
     Route: 065
     Dates: start: 201801, end: 201804
  9. RANITIDINE. [Suspect]
     Active Substance: RANITIDINE
     Indication: DIARRHOEA
     Dosage: 150 MG, QD
     Route: 065
     Dates: start: 201801, end: 201804
  10. RANITIDINE CAPSULE [Suspect]
     Active Substance: RANITIDINE
     Indication: GASTRIC ULCER
     Dosage: 75 MG, QD
     Route: 065
     Dates: start: 201801, end: 201804
  11. RANITIDINE CAPSULE [Suspect]
     Active Substance: RANITIDINE
     Indication: DIARRHOEA
     Dosage: 150 MG, QD
     Route: 065
     Dates: start: 201801, end: 201804
  12. RANITIDINE CAPSULE [Suspect]
     Active Substance: RANITIDINE
     Dosage: 300 MG, QD
     Route: 065
     Dates: start: 201801, end: 201804
  13. RANITIDINE. [Suspect]
     Active Substance: RANITIDINE
     Indication: GASTRIC ULCER
     Dosage: 75 MG, QD
     Route: 065
     Dates: start: 201801, end: 201804
  14. ZANTAC [Suspect]
     Active Substance: RANITIDINE HYDROCHLORIDE
     Indication: DIARRHOEA
  15. RANITIDINE. [Suspect]
     Active Substance: RANITIDINE
     Dosage: 300 MG, QD
     Route: 065
     Dates: start: 201801, end: 201804
  16. RANITIDINE. [Suspect]
     Active Substance: RANITIDINE
     Indication: DIARRHOEA
     Dosage: 150 MG, QD
     Route: 065
     Dates: start: 201801, end: 201804

REACTIONS (1)
  - Bladder cancer [Unknown]
